FAERS Safety Report 20597782 (Version 3)
Quarter: 2022Q4

REPORT INFORMATION
  Report Type: Spontaneous
  Country: US (occurrence: US)
  Receive Date: 20220315
  Receipt Date: 20221003
  Transmission Date: 20230112
  Serious: Yes (Life-Threatening, Hospitalization, Other)
  Sender: FDA-Public Use
  Company Number: US-NOVOPROD-897644

PATIENT
  Age: 78 Year
  Sex: Female

DRUGS (4)
  1. LEVEMIR [Suspect]
     Active Substance: INSULIN DETEMIR
     Indication: Diabetes mellitus
     Dosage: 30-45 UNITS 3 TIMES DAILY
     Route: 058
  2. NOVOLOG [Suspect]
     Active Substance: INSULIN ASPART
     Indication: Diabetes mellitus
     Dosage: UNK(3 TIMES DAILY)
  3. INSULIN ASPART [Suspect]
     Active Substance: INSULIN ASPART
     Indication: Diabetes mellitus
     Dosage: UNK
     Route: 058
  4. METFORMIN [Suspect]
     Active Substance: METFORMIN HYDROCHLORIDE
     Indication: Product used for unknown indication
     Dosage: UNK

REACTIONS (11)
  - Lung neoplasm malignant [Not Recovered/Not Resolved]
  - Cancer in remission [Recovered/Resolved]
  - Pulmonary oedema [Unknown]
  - Myocardial infarction [Unknown]
  - Knee arthroplasty [Unknown]
  - Road traffic accident [Unknown]
  - Limb injury [Unknown]
  - Hypoacusis [Unknown]
  - Vision blurred [Unknown]
  - Walking aid user [Unknown]
  - Intentional dose omission [Unknown]

NARRATIVE: CASE EVENT DATE: 20180101
